FAERS Safety Report 25481094 (Version 1)
Quarter: 2025Q2

REPORT INFORMATION
  Report Type: Spontaneous
  Country: US (occurrence: US)
  Receive Date: 20250626
  Receipt Date: 20250626
  Transmission Date: 20250717
  Serious: No
  Sender: SANDOZ
  Company Number: US-SANDOZ-SDZ2025US042893

PATIENT
  Sex: Female

DRUGS (2)
  1. ESTRADIOL [Suspect]
     Active Substance: ESTRADIOL
     Indication: Product used for unknown indication
     Dosage: UNK, BIW (2X WEEKLY); 0.1MG/24H 8TTS
     Route: 062
  2. ESTRADIOL [Suspect]
     Active Substance: ESTRADIOL
     Dosage: UNK, BIW (2X WEEKLY); 0.1MG/24H 8TTS
     Route: 062

REACTIONS (3)
  - Incorrect dose administered [Unknown]
  - Product adhesion issue [Unknown]
  - Device adhesion issue [Unknown]
